FAERS Safety Report 23795440 (Version 1)
Quarter: 2024Q2

REPORT INFORMATION
  Report Type: Spontaneous
  Country: CN (occurrence: CN)
  Receive Date: 20240429
  Receipt Date: 20240429
  Transmission Date: 20240716
  Serious: Yes (Hospitalization, Other)
  Sender: FDA-Public Use
  Company Number: CN-PFIZER INC-PV202400054727

PATIENT
  Age: 3 Year
  Sex: Female
  Weight: 12.5 kg

DRUGS (1)
  1. ZITHROMAX [Suspect]
     Active Substance: AZITHROMYCIN DIHYDRATE
     Indication: Respiratory tract infection
     Dosage: 0.125 G, 1X/DAY
     Route: 041
     Dates: start: 20240403, end: 20240403

REACTIONS (10)
  - Urticaria [Recovered/Resolved]
  - Pruritus [Recovered/Resolved]
  - Eyelid oedema [Recovered/Resolved]
  - Pneumonia mycoplasmal [Recovered/Resolved]
  - Swelling of eyelid [Recovered/Resolved]
  - Pharyngeal erythema [Recovered/Resolved]
  - Rales [Recovered/Resolved]
  - Hypersensitivity [Recovered/Resolved]
  - Drug ineffective [Unknown]
  - Off label use [Unknown]

NARRATIVE: CASE EVENT DATE: 20240401
